FAERS Safety Report 17953099 (Version 3)
Quarter: 2020Q3

REPORT INFORMATION
  Report Type: Spontaneous
  Country: CN (occurrence: CN)
  Receive Date: 20200627
  Receipt Date: 20200710
  Transmission Date: 20201103
  Serious: Yes (Other)
  Sender: FDA-Public Use
  Company Number: CN-UCBSA-2020024429

PATIENT
  Age: 50 Year
  Sex: Male
  Weight: 230 kg

DRUGS (6)
  1. KEPPRA [Suspect]
     Active Substance: LEVETIRACETAM
     Indication: PRODUCT USED FOR UNKNOWN INDICATION
     Dosage: 0.5 GRAM, 2X/DAY (BID)
     Dates: start: 201901
  2. CLONAZEPAM. [Concomitant]
     Active Substance: CLONAZEPAM
     Indication: INSOMNIA
     Dosage: UNK
  3. KEPPRA [Suspect]
     Active Substance: LEVETIRACETAM
     Dosage: 1.5 DOSAGE FORM, 2X/DAY (BID)
  4. KAI LAI TONG [Concomitant]
     Indication: INSOMNIA
     Dosage: UNK
  5. DEPAKINE [VALPROIC ACID] [Concomitant]
     Active Substance: VALPROIC ACID
     Indication: PRODUCT USED FOR UNKNOWN INDICATION
     Dosage: UNK
     Dates: end: 201901
  6. VIMPAT [Suspect]
     Active Substance: LACOSAMIDE
     Indication: EPILEPSY
     Dosage: VIMPAT 100 MG HALF DOSAGE FORM TWICE DAILY
     Dates: start: 20200612, end: 20200616

REACTIONS (11)
  - Panic attack [Recovering/Resolving]
  - Malaise [Recovering/Resolving]
  - Off label use [Unknown]
  - Insomnia [Recovering/Resolving]
  - Muscle rigidity [Recovering/Resolving]
  - Delirium [Unknown]
  - Discomfort [Recovering/Resolving]
  - Hypertension [Recovering/Resolving]
  - Tremor [Recovering/Resolving]
  - Nausea [Recovering/Resolving]
  - Ill-defined disorder [Unknown]

NARRATIVE: CASE EVENT DATE: 201901
